FAERS Safety Report 7393907-7 (Version None)
Quarter: 2011Q2

REPORT INFORMATION
  Report Type: 
  Country: None (occurrence: None)
  Receive Date: 20110405
  Receipt Date: 20110322
  Transmission Date: 20111010
  Serious: Yes (Hospitalization, Disabling, Other)
  Sender: FDA-Public Use
  Company Number: DE-ACTELION-A-CH2011-45353

PATIENT
  Age: 42 Year
  Sex: Female

DRUGS (3)
  1. MARCUMAR [Concomitant]
  2. TRACLEER [Suspect]
     Indication: PULMONARY ARTERIAL HYPERTENSION
     Dosage: UNK , UNK
     Route: 048
  3. REVATIO [Concomitant]

REACTIONS (14)
  - GENERAL PHYSICAL HEALTH DETERIORATION [None]
  - INTERSTITIAL LUNG DISEASE [None]
  - COUGH [None]
  - GAMMA-GLUTAMYLTRANSFERASE INCREASED [None]
  - PNEUMONIA [None]
  - LUNG INFILTRATION [None]
  - WHITE BLOOD CELL COUNT DECREASED [None]
  - LIVER FUNCTION TEST ABNORMAL [None]
  - ALANINE AMINOTRANSFERASE INCREASED [None]
  - HYPOXIA [None]
  - PYREXIA [None]
  - BLOOD CULTURE POSITIVE [None]
  - C-REACTIVE PROTEIN INCREASED [None]
  - ASPARTATE AMINOTRANSFERASE INCREASED [None]
